FAERS Safety Report 8418488-8 (Version None)
Quarter: 2012Q2

REPORT INFORMATION
  Report Type: 
  Country: None (occurrence: None)
  Receive Date: 20120530
  Receipt Date: 20120518
  Transmission Date: 20120825
  Serious: Yes (Hospitalization)
  Sender: FDA-Public Use
  Company Number: JPI-P-021569

PATIENT
  Age: 56 Year
  Sex: Female

DRUGS (2)
  1. XYREM [Suspect]
     Indication: SLEEP DISORDER
     Dosage: (3-4.5 GRAMS), ORAL (UNKNOWN), ORAL 12 GM (6 GM,2 IN 1 D), ORAL
     Route: 048
     Dates: start: 20090529
  2. XYREM [Suspect]
     Indication: SLEEP DISORDER
     Dosage: (3-4.5 GRAMS), ORAL (UNKNOWN), ORAL 12 GM (6 GM,2 IN 1 D), ORAL
     Route: 048
     Dates: start: 20061113

REACTIONS (1)
  - CHOLECYSTECTOMY [None]
